FAERS Safety Report 8621686-1 (Version None)
Quarter: 2012Q3

REPORT INFORMATION
  Report Type: 
  Country: None (occurrence: None)
  Receive Date: 20120825
  Receipt Date: 20120816
  Transmission Date: 20120928
  Serious: Yes (Life-Threatening)
  Sender: FDA-Public Use
  Company Number: US-009507513-1208USA008795

PATIENT

DRUGS (8)
  1. FIORICET [Concomitant]
  2. MEDROL [Concomitant]
  3. ONDANSETRON [Concomitant]
  4. QUETIAPINE FUMARATE [Concomitant]
  5. LEVOTHYROXINE SODIUM [Concomitant]
  6. MAXALT [Suspect]
     Indication: MIGRAINE
     Dosage: UNK, PRN
  7. CYCLOBENZAPRINE HCL [Concomitant]
  8. METAXALONE [Concomitant]

REACTIONS (1)
  - PERICARDIAL EFFUSION [None]
